FAERS Safety Report 5417776-7 (Version None)
Quarter: 2007Q3

REPORT INFORMATION
  Report Type: 
  Country: None (occurrence: None)
  Receive Date: 20070817
  Receipt Date: 20070810
  Transmission Date: 20080115
  Serious: Yes (Hospitalization, Other)
  Sender: FDA-Public Use
  Company Number: PHBS2007BR13342

PATIENT
  Age: 63 Year
  Sex: Female
  Weight: 50 kg

DRUGS (1)
  1. COMBIPATCH [Suspect]
     Dosage: EVERY 15 DAYS
     Route: 062

REACTIONS (2)
  - SURGERY [None]
  - VULVAL CANCER [None]
